FAERS Safety Report 11159605 (Version 1)
Quarter: 2015Q2

REPORT INFORMATION
  Report Type: Spontaneous
  Country: US (occurrence: US)
  Receive Date: 20150603
  Receipt Date: 20150603
  Transmission Date: 20150821
  Serious: Yes (Other)
  Sender: FDA-Public Use
  Company Number: US-ABBVIE-15P-163-1348501-00

PATIENT
  Age: 56 Year
  Sex: Female

DRUGS (5)
  1. MARINOL [Suspect]
     Active Substance: DRONABINOL
     Indication: PRODUCT USED FOR UNKNOWN INDICATION
     Dosage: 2 CAPSULE IN THE MORNING AND 1 CAPSULE IN THE EVENING
     Route: 048
     Dates: start: 201501, end: 20150206
  2. DEPAKOTE ER [Suspect]
     Active Substance: DIVALPROEX SODIUM
     Indication: SEIZURE
     Dosage: 2000 MG OF DEPAKOTE ER DAILY
     Route: 048
     Dates: end: 201501
  3. MARINOL [Suspect]
     Active Substance: DRONABINOL
     Dosage: 2 CAPSULES IN THE MORNING AND EVENING
     Route: 048
     Dates: start: 20150206
  4. KEPPRA [Concomitant]
     Active Substance: LEVETIRACETAM
     Indication: SEIZURE
  5. DEPAKOTE ER [Suspect]
     Active Substance: DIVALPROEX SODIUM
     Dosage: 1750MG OF DEPAKOTE ER DAILY
     Route: 048
     Dates: start: 201501

REACTIONS (3)
  - Generalised tonic-clonic seizure [Recovered/Resolved]
  - Seizure [Not Recovered/Not Resolved]
  - Disturbance in attention [Not Recovered/Not Resolved]

NARRATIVE: CASE EVENT DATE: 20150206
